FAERS Safety Report 6206411-6 (Version None)
Quarter: 2009Q2

REPORT INFORMATION
  Report Type: 
  Country: None (occurrence: None)
  Receive Date: 20090528
  Receipt Date: 20090520
  Transmission Date: 20091009
  Serious: Yes (Other)
  Sender: FDA-Public Use
  Company Number: ES-JNJFOC-20090500831

PATIENT
  Age: 58 Year
  Sex: Female
  Weight: 109 kg

DRUGS (4)
  1. REMICADE [Suspect]
     Indication: PSORIATIC ARTHROPATHY
     Dosage: RECEIVED APPROXIMATELY 17 INFUSIONS
     Route: 042
  2. METHOTREXATE [Concomitant]
     Indication: ARTHRITIS
  3. PREDNISONE [Concomitant]
     Indication: PSORIATIC ARTHROPATHY
  4. COZAAR [Concomitant]
     Indication: HYPERTENSION
     Route: 048

REACTIONS (8)
  - DERMATITIS EXFOLIATIVE [None]
  - DYSPNOEA [None]
  - FEELING HOT [None]
  - FLUSHING [None]
  - HYPOTENSION [None]
  - INFUSION RELATED REACTION [None]
  - OXYGEN SATURATION ABNORMAL [None]
  - TACHYCARDIA [None]
